FAERS Safety Report 4781094-0 (Version None)
Quarter: 2005Q3

REPORT INFORMATION
  Report Type: 
  Country: None (occurrence: None)
  Receive Date: 20050926
  Receipt Date: 20050919
  Transmission Date: 20060218
  Serious: Yes (Disabling)
  Sender: FDA-Public Use
  Company Number: A044-002-005750

PATIENT
  Age: 64 Year
  Sex: Female

DRUGS (3)
  1. ARICEPT [Suspect]
     Dosage: 5 MG, 1 IN 1 D, ORAL
     Route: 048
  2. FLUOXETINE [Suspect]
     Dosage: 20 MG, ORAL ; LONG TERM
     Route: 048
  3. RISPERIDONE [Suspect]
     Dosage: ORAL ; LONG TERM
     Route: 048

REACTIONS (4)
  - ASTHENIA [None]
  - DRUG INTERACTION [None]
  - RADIAL NERVE PALSY [None]
  - TREMOR [None]
